FAERS Safety Report 8131268-6 (Version None)
Quarter: 2012Q1

REPORT INFORMATION
  Report Type: 
  Country: None (occurrence: None)
  Receive Date: 20120213
  Receipt Date: 20120204
  Transmission Date: 20120608
  Serious: Yes (Hospitalization)
  Sender: FDA-Public Use
  Company Number: US-BAYER-2011-006955

PATIENT
  Age: 18 Year
  Sex: Female
  Weight: 70.295 kg

DRUGS (3)
  1. BENTYL [Concomitant]
  2. TRI-SPRINTEC [Concomitant]
  3. YAZ [Suspect]
     Indication: CONTRACEPTION
     Dosage: UNK
     Dates: start: 20070501, end: 20070601

REACTIONS (3)
  - GALLBLADDER DISORDER [None]
  - IRRITABLE BOWEL SYNDROME [None]
  - CHOLECYSTITIS [None]
